FAERS Safety Report 7048946-2 (Version None)
Quarter: 2010Q4

REPORT INFORMATION
  Report Type: 
  Country: None (occurrence: None)
  Receive Date: 20101012
  Receipt Date: 20100928
  Transmission Date: 20110411
  Serious: Yes (Life-Threatening, Hospitalization)
  Sender: FDA-Public Use
  Company Number: 2010MA003260

PATIENT
  Age: 60 Year
  Sex: Female

DRUGS (6)
  1. METFORMIN HCL [Suspect]
     Indication: METABOLIC SYNDROME
     Dosage: 2.5 MG;PO
     Route: 048
  2. CIPROFLOXACIN [Suspect]
     Indication: DIVERTICULITIS
     Dosage: 500 MG;BID;PO
     Route: 048
     Dates: start: 20100721, end: 20100727
  3. METRONIDAZOLE [Suspect]
     Indication: DIVERTICULITIS
     Dosage: 50 MG;BID
     Dates: start: 20100721, end: 20100727
  4. METHOTREXATE [Suspect]
     Indication: RHEUMATOID ARTHRITIS
     Dosage: 15 MG;PO
     Route: 048
  5. CON MEDS [Concomitant]
  6. PREV MEDS [Concomitant]

REACTIONS (4)
  - ALVEOLITIS ALLERGIC [None]
  - DEVICE RELATED SEPSIS [None]
  - DIVERTICULITIS [None]
  - RESPIRATORY FAILURE [None]
